FAERS Safety Report 6693832-0 (Version None)
Quarter: 2010Q2

REPORT INFORMATION
  Report Type: 
  Country: None (occurrence: None)
  Receive Date: 20100423
  Receipt Date: 20100413
  Transmission Date: 20101027
  Serious: Yes (Hospitalization)
  Sender: FDA-Public Use
  Company Number: FR-JNJFOC-20100404353

PATIENT
  Sex: Male
  Weight: 2.2 kg

DRUGS (9)
  1. REMICADE [Suspect]
     Indication: DRUG EXPOSURE DURING PREGNANCY
     Route: 064
  2. TAZOCILLINE [Concomitant]
     Route: 064
  3. LOVENOX [Concomitant]
     Route: 064
  4. RED BLOOD CELLS [Concomitant]
     Route: 064
  5. VENOFER [Concomitant]
     Route: 064
  6. FLAGYL [Concomitant]
     Route: 064
  7. ROCEPHIN [Concomitant]
     Route: 064
  8. VANCOMYCIN [Concomitant]
     Route: 064
  9. CORTICOSTEROID NOS [Concomitant]
     Route: 064

REACTIONS (7)
  - DEHYDRATION [None]
  - DRUG EXPOSURE DURING PREGNANCY [None]
  - FEEDING DISORDER [None]
  - GASTROOESOPHAGEAL REFLUX DISEASE [None]
  - JAUNDICE [None]
  - PREMATURE BABY [None]
  - SPINAL DISORDER [None]
